FAERS Safety Report 19185352 (Version 2)
Quarter: 2021Q2

REPORT INFORMATION
  Report Type: Spontaneous
  Country: JP (occurrence: JP)
  Receive Date: 20210427
  Receipt Date: 20210505
  Transmission Date: 20210717
  Serious: Yes (Death, Hospitalization, Other)
  Sender: FDA-Public Use
  Company Number: JP-EXELIXIS-CABO-21039383

PATIENT
  Age: 79 Year
  Sex: Male
  Weight: 66.3 kg

DRUGS (8)
  1. AMLODIPINE [Concomitant]
     Active Substance: AMLODIPINE BESYLATE
     Indication: HYPERTENSION
     Dosage: 5 MILLIGRAM, QD
     Route: 048
     Dates: start: 20120917, end: 20210417
  2. CABOMETYX [Suspect]
     Active Substance: CABOZANTINIB S-MALATE
     Indication: HEPATOCELLULAR CARCINOMA
     Dosage: 20 MG, QD
     Route: 048
     Dates: start: 20210322, end: 20210404
  3. SPIRONOLACTONE. [Concomitant]
     Active Substance: SPIRONOLACTONE
     Indication: OEDEMA
     Dosage: 25 MILLIGRAM, QD
     Route: 048
     Dates: start: 20200326, end: 20210417
  4. FUROSEMIDE. [Concomitant]
     Active Substance: FUROSEMIDE
     Indication: OEDEMA
     Dosage: 10 MILLIGRAM, QD
     Route: 048
     Dates: start: 20181105, end: 20210417
  5. LIVACT [Concomitant]
     Active Substance: AMINO ACIDS, SOURCE UNSPECIFIED
     Indication: HEPATIC FAILURE
     Dosage: 1 DOSAGE FORM, TID
     Route: 048
     Dates: start: 20120917, end: 20210416
  6. L CARTIN FF [Concomitant]
     Active Substance: LEVOCARNITINE
     Indication: MUSCLE SPASMS
     Dosage: 1 DOSAGE FORM, QD
     Route: 048
     Dates: start: 20200615, end: 20210416
  7. CABOMETYX [Suspect]
     Active Substance: CABOZANTINIB S-MALATE
     Dosage: 20 MG, QD
     Route: 048
     Dates: start: 20210415, end: 20210417
  8. FAMOTIDINE. [Concomitant]
     Active Substance: FAMOTIDINE
     Indication: PROPHYLAXIS
     Dosage: 20 MILLIGRAM, BID
     Route: 048
     Dates: start: 20120917, end: 20210416

REACTIONS (5)
  - Tumour haemorrhage [Fatal]
  - Acute respiratory distress syndrome [Fatal]
  - Acute kidney injury [Fatal]
  - Mouth haemorrhage [Unknown]
  - Metastases to lung [Fatal]

NARRATIVE: CASE EVENT DATE: 20210404
